FAERS Safety Report 15506720 (Version 3)
Quarter: 2018Q4

REPORT INFORMATION
  Report Type: Spontaneous
  Country: FR (occurrence: FR)
  Receive Date: 20181016
  Receipt Date: 20181120
  Transmission Date: 20190205
  Serious: Yes (Life-Threatening, Other)
  Sender: FDA-Public Use
  Company Number: FR-PFIZER INC-2018414673

PATIENT
  Age: 59 Year
  Sex: Male
  Weight: 80 kg

DRUGS (11)
  1. DOXYCYCLINE MONOHYDRATE [Suspect]
     Active Substance: DOXYCYCLINE
     Dosage: 1500 MG, 1X/DAY
     Route: 048
     Dates: start: 20170801, end: 20170803
  2. CEFTRIAXONE. [Suspect]
     Active Substance: CEFTRIAXONE
     Indication: EPIDIDYMITIS
     Dosage: 2 G, 1X/DAY
     Route: 042
     Dates: start: 20170727, end: 20170803
  3. OFLOXACINE [Suspect]
     Active Substance: OFLOXACIN
     Indication: EPIDIDYMITIS
     Dosage: 400 MG, 1X/DAY
     Route: 048
     Dates: start: 20170724, end: 20170803
  4. TILCOTIL [Suspect]
     Active Substance: TENOXICAM
     Indication: EPIDIDYMITIS
     Dosage: 20 MG, 1X/DAY
     Route: 048
     Dates: start: 20170724, end: 20170727
  5. ACTONEL [Suspect]
     Active Substance: RISEDRONATE SODIUM
     Indication: OSTEOPOROSIS
     Dosage: 35 MG, WEEKLY
     Route: 048
     Dates: start: 2015, end: 20170807
  6. METRONIDAZOLE. [Suspect]
     Active Substance: METRONIDAZOLE
     Indication: DIARRHOEA
     Dosage: 1500 MG, 1X/DAY
     Route: 048
     Dates: start: 20170801, end: 20170803
  7. NASACORT [Concomitant]
     Active Substance: TRIAMCINOLONE ACETONIDE
     Dosage: 2 PULSE IN EACH NOSTRIL
     Route: 045
  8. DOLIPRANE [Concomitant]
     Active Substance: ACETAMINOPHEN
     Dosage: 1 G, UNK
     Route: 048
  9. CACIT VITAMINE D3 [Concomitant]
     Active Substance: CALCIUM CARBONATE\CHOLECALCIFEROL
     Indication: OSTEOPOROSIS
     Dosage: 1 DF, 1X/DAY
     Route: 048
     Dates: start: 2015
  10. DOXYCYCLINE MONOHYDRATE [Suspect]
     Active Substance: DOXYCYCLINE
     Indication: ANTIBIOTIC PROPHYLAXIS
     Dosage: 200 MG, 1X/DAY
     Route: 048
     Dates: start: 20170801, end: 20170803
  11. EVIPLERA [Suspect]
     Active Substance: EMTRICITABINE\RILPIVIRINE\TENOFOVIR DISOPROXIL FUMARATE
     Indication: HIV INFECTION
     Dosage: 1 DF (200 MG / 25 MG / 245 MG), 1X/DAY
     Route: 048
     Dates: start: 2011

REACTIONS (3)
  - Large intestine perforation [Recovered/Resolved with Sequelae]
  - Overdose [Unknown]
  - Distal intestinal obstruction syndrome [Recovered/Resolved with Sequelae]

NARRATIVE: CASE EVENT DATE: 20170801
